FAERS Safety Report 13921709 (Version 1)
Quarter: 2017Q3

REPORT INFORMATION
  Report Type: Spontaneous
  Country: US (occurrence: None)
  Receive Date: 20170830
  Receipt Date: 20170830
  Transmission Date: 20171127
  Serious: No
  Sender: FDA-Public Use
  Company Number: None

PATIENT
  Age: 54 Year
  Sex: Female
  Weight: 88.9 kg

DRUGS (1)
  1. MODAFINIL 200MG [Suspect]
     Active Substance: MODAFINIL
     Indication: NARCOLEPSY
     Dates: start: 20160630, end: 20160718

REACTIONS (4)
  - Fatigue [None]
  - Lethargy [None]
  - Rash [None]
  - Gastrointestinal pain [None]

NARRATIVE: CASE EVENT DATE: 20160718
